FAERS Safety Report 13500476 (Version 3)
Quarter: 2018Q2

REPORT INFORMATION
  Report Type: Spontaneous
  Country: CA (occurrence: CA)
  Receive Date: 20170501
  Receipt Date: 20180517
  Transmission Date: 20180711
  Serious: Yes (Other)
  Sender: FDA-Public Use
  Company Number: CA-OTSUKA-2017_009684

PATIENT
  Age: 3 Year
  Sex: Male
  Weight: 17.5 kg

DRUGS (2)
  1. PROCYTOX [Suspect]
     Active Substance: CYCLOPHOSPHAMIDE
     Indication: LEUKAEMIA
     Dosage: 660 MG, QID (660 MG, 1 EVERY 6 HOURS)
     Route: 042
     Dates: start: 20111002, end: 20111005
  2. BUSULFEX [Suspect]
     Active Substance: BUSULFAN
     Indication: LEUKAEMIA
     Dosage: 17.5-24MG, EVERY 6 HOURS (QID)
     Route: 042
     Dates: start: 20110928, end: 20111002

REACTIONS (1)
  - Cardiotoxicity [Recovered/Resolved]

NARRATIVE: CASE EVENT DATE: 20120109
